FAERS Safety Report 20565687 (Version 3)
Quarter: 2022Q3

REPORT INFORMATION
  Report Type: Spontaneous
  Country: JP (occurrence: JP)
  Receive Date: 20220308
  Receipt Date: 20220715
  Transmission Date: 20221027
  Serious: No
  Sender: FDA-Public Use
  Company Number: JP-GLAXOSMITHKLINE-JP2022JPN039488

PATIENT

DRUGS (5)
  1. SOTROVIMAB [Suspect]
     Active Substance: SOTROVIMAB
     Indication: COVID-19
     Dosage: 500 MG/DAY
     Route: 041
     Dates: start: 20220227, end: 20220227
  2. AMBROXOL HYDROCHLORIDE [Suspect]
     Active Substance: AMBROXOL HYDROCHLORIDE
     Dosage: 45 MG/DAY
     Route: 048
  3. FERRIC CITRATE ANHYDROUS [Suspect]
     Active Substance: FERRIC CITRATE ANHYDROUS
     Dosage: 500 MG/DAY
     Route: 048
  4. DIMEMORFAN PHOSPHATE [Suspect]
     Active Substance: DIMEMORFAN PHOSPHATE
     Dosage: 30 MG/DAY
     Route: 048
  5. CALONAL [Suspect]
     Active Substance: ACETAMINOPHEN
     Dosage: 400 MG/DOSE, PRN
     Route: 048

REACTIONS (1)
  - Exposure during pregnancy [Unknown]
